FAERS Safety Report 5270753-1 (Version None)
Quarter: 2007Q1

REPORT INFORMATION
  Report Type: 
  Country: None (occurrence: None)
  Receive Date: 20070315
  Receipt Date: 20070228
  Transmission Date: 20070707
  Serious: Yes (Hospitalization)
  Sender: FDA-Public Use
  Company Number: MEDI-0004408

PATIENT
  Age: 10 Month
  Sex: 0
  Weight: 10.75 kg

DRUGS (1)
  1. SYNAGIS [Suspect]
     Indication: ANTIVIRAL PROPHYLAXIS
     Dosage: 150 MG, 1 IN 1 30 D, INTRAMUSCULAR
     Route: 030
     Dates: start: 20051027, end: 20051027

REACTIONS (2)
  - BRONCHIOLITIS [None]
  - RESPIRATORY DISORDER [None]
